FAERS Safety Report 13779716 (Version 1)
Quarter: 2017Q3

REPORT INFORMATION
  Report Type: Spontaneous
  Country: CN (occurrence: CN)
  Receive Date: 20170722
  Receipt Date: 20170722
  Transmission Date: 20171127
  Serious: Yes (Life-Threatening)
  Sender: FDA-Public Use
  Company Number: CN-ROCHE-1965590

PATIENT
  Age: 43 Year
  Sex: Female
  Weight: 52 kg

DRUGS (3)
  1. MABTHERA [Suspect]
     Active Substance: RITUXIMAB
     Indication: LYMPHOMA
     Dosage: INJECTION
     Route: 041
     Dates: start: 20170424, end: 20170424
  2. INDOMETHACIN. [Concomitant]
     Active Substance: INDOMETHACIN
  3. ANISODAMINE [Concomitant]
     Active Substance: ANISODAMINE
     Indication: MUSCLE SPASMS
     Route: 065

REACTIONS (2)
  - Cardiovascular disorder [Recovered/Resolved]
  - Gastrointestinal disorder [Recovered/Resolved]

NARRATIVE: CASE EVENT DATE: 20170424
